FAERS Safety Report 16065892 (Version 1)
Quarter: 2019Q1

REPORT INFORMATION
  Report Type: Report from Study
  Country: UG (occurrence: UG)
  Receive Date: 20190313
  Receipt Date: 20190313
  Transmission Date: 20190418
  Serious: Yes (Hospitalization, Other)
  Sender: FDA-Public Use
  Company Number: PHHO2018UG007481

PATIENT
  Age: 14 Year
  Sex: Female
  Weight: 52 kg

DRUGS (1)
  1. LUMEFANTRINE [Suspect]
     Active Substance: LUMEFANTRINE
     Indication: PLASMODIUM FALCIPARUM INFECTION
     Dosage: 480 MG, QD
     Route: 048
     Dates: start: 20180605

REACTIONS (1)
  - Anaemia [Recovered/Resolved]

NARRATIVE: CASE EVENT DATE: 20180617
